FAERS Safety Report 4451084-6 (Version None)
Quarter: 2004Q3

REPORT INFORMATION
  Report Type: 
  Country: None (occurrence: None)
  Receive Date: 20040916
  Receipt Date: 20040907
  Transmission Date: 20050211
  Serious: Yes (Other)
  Sender: FDA-Public Use
  Company Number: FI-JNJFOC-20040902120

PATIENT
  Age: 61 Year
  Sex: Male

DRUGS (4)
  1. REMICADE [Suspect]
     Route: 042
  2. REMICADE [Suspect]
     Indication: CROHN'S DISEASE
     Route: 042
  3. AZAMUN [Concomitant]
     Indication: CROHN'S DISEASE
     Route: 049
  4. ENTOCORT EC [Concomitant]
     Indication: CROHN'S DISEASE
     Route: 049

REACTIONS (3)
  - ANAEMIA [None]
  - CHRONIC MYELOID LEUKAEMIA [None]
  - FATIGUE [None]
